FAERS Safety Report 6539956-X (Version None)
Quarter: 2010Q1

REPORT INFORMATION
  Report Type: 
  Country: None (occurrence: None)
  Receive Date: 20100115
  Receipt Date: 20100107
  Transmission Date: 20100710
  Serious: Yes (Hospitalization, Other)
  Sender: FDA-Public Use
  Company Number: CH-WYE-G05281210

PATIENT
  Age: 40 Year
  Sex: Female

DRUGS (8)
  1. EFFEXOR [Suspect]
     Route: 048
     Dates: start: 20090110, end: 20090928
  2. EFFEXOR [Interacting]
     Route: 048
     Dates: start: 20090929, end: 20091005
  3. EFFEXOR [Interacting]
     Route: 048
     Dates: start: 20091006, end: 20091013
  4. EFFEXOR [Interacting]
     Route: 048
     Dates: start: 20091014, end: 20091014
  5. EFFEXOR [Interacting]
     Route: 048
     Dates: start: 20091015, end: 20091017
  6. SEROQUEL [Interacting]
     Route: 048
     Dates: start: 20090518
  7. VALIUM [Concomitant]
     Route: 048
     Dates: start: 20090518
  8. ORFIRIL [Interacting]
     Route: 048
     Dates: start: 20090110

REACTIONS (3)
  - ANTIDEPRESSANT DRUG LEVEL ABOVE THERAPEUTIC [None]
  - DRUG INTERACTION [None]
  - TREMOR [None]
